FAERS Safety Report 8866367 (Version 2)
Quarter: 2013Q2

REPORT INFORMATION
  Report Type: Spontaneous
  Country: US (occurrence: US)
  Receive Date: 20121025
  Receipt Date: 20130621
  Transmission Date: 20140414
  Serious: Yes (Death, Other)
  Sender: FDA-Public Use
  Company Number: PHHY2012US095075

PATIENT
  Age: 14 Year
  Sex: Male

DRUGS (5)
  1. MYCOPHENOLATE [Suspect]
     Indication: PROPHYLAXIS AGAINST GRAFT VERSUS HOST DISEASE
     Dosage: UNK UKN, UNK
  2. FLUDARABINE [Suspect]
     Indication: PROPHYLAXIS AGAINST GRAFT VERSUS HOST DISEASE
     Dosage: 40 MG/M2, PER DAY FOR FIVE DAYS
  3. THIOTEPA [Concomitant]
     Dosage: UNK UKN, UNK
  4. MELPHALAN [Concomitant]
     Dosage: UNK UKN, UNK
  5. OKT 3 [Concomitant]
     Dosage: UNK UKN, UNK

REACTIONS (26)
  - Sepsis [Fatal]
  - Leukoencephalopathy [Unknown]
  - Demyelination [Unknown]
  - Sensory disturbance [Unknown]
  - Hyperreflexia [Unknown]
  - Gait disturbance [Unknown]
  - Somnolence [Unknown]
  - Optic nerve disorder [Unknown]
  - Disorientation [Unknown]
  - Hyporeflexia [Unknown]
  - Affect lability [Unknown]
  - Anxiety disorder [Unknown]
  - Feeding disorder [Unknown]
  - Dyspnoea [Unknown]
  - Blindness [Unknown]
  - Atrophy [Unknown]
  - Peroneal nerve palsy [Unknown]
  - Clonus [Unknown]
  - Autonomic nervous system imbalance [Unknown]
  - Sensory loss [Unknown]
  - Pain [Unknown]
  - Chills [Unknown]
  - Paraesthesia [Unknown]
  - Infection [Unknown]
  - Graft versus host disease [Unknown]
  - Apallic syndrome [Unknown]
